FAERS Safety Report 8166518-3 (Version None)
Quarter: 2012Q1

REPORT INFORMATION
  Report Type: 
  Country: None (occurrence: None)
  Receive Date: 20120227
  Receipt Date: 20111107
  Transmission Date: 20120608
  Serious: No
  Sender: FDA-Public Use
  Company Number: US-MYLANLABS-2011S1021169

PATIENT
  Age: 24 Year
  Sex: Male
  Weight: 68.04 kg

DRUGS (2)
  1. AMNESTEEM [Suspect]
     Indication: ACNE CYSTIC
     Route: 048
  2. CLARAVIS [Suspect]
     Indication: ACNE CYSTIC
     Route: 048

REACTIONS (3)
  - PANIC ATTACK [None]
  - LABORATORY TEST ABNORMAL [None]
  - ANXIETY [None]
